FAERS Safety Report 19066760 (Version 1)
Quarter: 2021Q1

REPORT INFORMATION
  Report Type: Report from Study
  Country: US (occurrence: US)
  Receive Date: 20210329
  Receipt Date: 20210329
  Transmission Date: 20210420
  Serious: Yes (Hospitalization)
  Sender: FDA-Public Use
  Company Number: US-BAUSCH-BL-2021-010233

PATIENT
  Age: 77 Year
  Sex: Male

DRUGS (1)
  1. XIFAXAN [Suspect]
     Active Substance: RIFAXIMIN
     Indication: AMMONIA ABNORMAL
     Route: 048

REACTIONS (7)
  - Loss of personal independence in daily activities [Unknown]
  - Gastrointestinal infection [Unknown]
  - Ammonia increased [Unknown]
  - Memory impairment [Not Recovered/Not Resolved]
  - Disorientation [Unknown]
  - Dehydration [Unknown]
  - Confusional state [Unknown]
